FAERS Safety Report 4313693-4 (Version None)
Quarter: 2004Q1

REPORT INFORMATION
  Report Type: 
  Country: None (occurrence: None)
  Receive Date: 20040305
  Receipt Date: 20040227
  Transmission Date: 20041129
  Serious: Yes (Other)
  Sender: FDA-Public Use
  Company Number: 2004201500US

PATIENT
  Age: 64 Year
  Sex: Male

DRUGS (1)
  1. BEXTRA [Suspect]
     Indication: ARTHRITIS
     Dosage: 20 MG, BID,
     Dates: start: 20040211, end: 20040214

REACTIONS (5)
  - FEELING HOT [None]
  - PRURITUS [None]
  - RASH [None]
  - REFUSAL OF TREATMENT BY PATIENT [None]
  - SWELLING FACE [None]
